FAERS Safety Report 16377476 (Version 3)
Quarter: 2019Q3

REPORT INFORMATION
  Report Type: Spontaneous
  Country: US (occurrence: US)
  Receive Date: 20190531
  Receipt Date: 20190710
  Transmission Date: 20191004
  Serious: Yes (Other)
  Sender: FDA-Public Use
  Company Number: US-PFIZER INC-2019115358

PATIENT
  Age: 79 Year
  Sex: Male
  Weight: 86 kg

DRUGS (3)
  1. XALATAN [Suspect]
     Active Substance: LATANOPROST
     Indication: GLAUCOMA
     Dosage: 1 GTT, 1X/DAY (BEFORE BED)
     Route: 047
     Dates: start: 20190301, end: 201903
  2. LATANOPROST. [Concomitant]
     Active Substance: LATANOPROST
     Dosage: 1 GTT, 1X/DAY 1 GTT QHS (AT BEDTIME)
     Dates: start: 20190301, end: 20190330
  3. XALATAN [Suspect]
     Active Substance: LATANOPROST
     Indication: EYE DISORDER
     Dosage: 1 GTT (IN EACH EYE), 1X/DAY (AT BEDTIME)
     Route: 047
     Dates: start: 20190227

REACTIONS (5)
  - Lacrimation increased [Not Recovered/Not Resolved]
  - Product dropper issue [Unknown]
  - Ectropion [Unknown]
  - Exposure via skin contact [Unknown]
  - Accidental exposure to product [Unknown]

NARRATIVE: CASE EVENT DATE: 20190227
